FAERS Safety Report 7819318-5 (Version None)
Quarter: 2011Q4

REPORT INFORMATION
  Report Type: 
  Country: None (occurrence: None)
  Receive Date: 20111018
  Receipt Date: 20110623
  Transmission Date: 20120403
  Serious: No
  Sender: FDA-Public Use
  Company Number: US-ASTRAZENECA-2011SE32577

PATIENT
  Age: 39 Year
  Sex: Male

DRUGS (1)
  1. SYMBICORT [Suspect]
     Indication: ASTHMA
     Dosage: 160/4.5 MCG UNKNOWN FREQUENCY
     Route: 055

REACTIONS (4)
  - CHEST DISCOMFORT [None]
  - WHEEZING [None]
  - DYSPNOEA [None]
  - DRUG DOSE OMISSION [None]
